FAERS Safety Report 7680330-0 (Version None)
Quarter: 2011Q3

REPORT INFORMATION
  Report Type: 
  Country: None (occurrence: None)
  Receive Date: 20110812
  Receipt Date: 20110808
  Transmission Date: 20111222
  Serious: Yes (Life-Threatening, Hospitalization, Other)
  Sender: FDA-Public Use
  Company Number: US-GLAXOSMITHKLINE-A0940084A

PATIENT
  Age: 20 Year
  Sex: Male

DRUGS (2)
  1. LAMICTAL XR [Suspect]
     Indication: EPILEPSY
     Dosage: 5000MG SINGLE DOSE
     Route: 048
     Dates: start: 20110501
  2. NO CONCURRENT MEDICATION [Concomitant]

REACTIONS (3)
  - INAPPROPRIATE SCHEDULE OF DRUG ADMINISTRATION [None]
  - SUICIDE ATTEMPT [None]
  - OVERDOSE [None]
